FAERS Safety Report 7014470-6 (Version None)
Quarter: 2010Q3

REPORT INFORMATION
  Report Type: 
  Country: None (occurrence: None)
  Receive Date: 20100927
  Receipt Date: 20100913
  Transmission Date: 20110219
  Serious: Yes (Hospitalization, Other)
  Sender: FDA-Public Use
  Company Number: US-ELI_LILLY_AND_COMPANY-US201008000721

PATIENT
  Sex: Female

DRUGS (11)
  1. FORTEO [Suspect]
     Indication: OSTEOPOROSIS
     Dosage: 20 UG, DAILY (1/D)
  2. METFORMIN [Concomitant]
  3. ASPIRIN [Concomitant]
  4. OXYBUTIN [Concomitant]
  5. FUROSEMIDE [Concomitant]
  6. VITAMIN D [Concomitant]
     Dosage: 400 IU, UNK
  7. GABAPENTIN [Concomitant]
     Dosage: 100 MG, UNK
  8. GLUCOSAMINE [Concomitant]
  9. TUMS [Concomitant]
  10. SIMVASTATIN [Concomitant]
  11. IPRATROPIUM BROMIDE [Concomitant]
     Route: 055

REACTIONS (5)
  - HEPATIC ENZYME INCREASED [None]
  - LUNG DISORDER [None]
  - LUNG NEOPLASM MALIGNANT [None]
  - NON-CARDIAC CHEST PAIN [None]
  - PANCREATIC ENZYMES INCREASED [None]
